FAERS Safety Report 12812909 (Version 4)
Quarter: 2017Q1

REPORT INFORMATION
  Report Type: Report from Study
  Country: US (occurrence: US)
  Receive Date: 20161005
  Receipt Date: 20170125
  Transmission Date: 20170428
  Serious: Yes (Hospitalization, Other)
  Sender: FDA-Public Use
  Company Number: US-ACTELION-A-US2016-143127

PATIENT
  Age: 88 Year
  Sex: Male

DRUGS (2)
  1. OPSUMIT [Suspect]
     Active Substance: MACITENTAN
     Indication: PULMONARY ARTERIAL HYPERTENSION
     Dosage: 10 MG, QD
     Route: 048
     Dates: start: 20140527
  2. CARDIZEM [Concomitant]
     Active Substance: DILTIAZEM HYDROCHLORIDE

REACTIONS (11)
  - Dizziness [Unknown]
  - Weight decreased [Unknown]
  - Presyncope [Unknown]
  - Pain [Unknown]
  - Fall [Unknown]
  - Dyspnoea [Unknown]
  - Kidney infection [Unknown]
  - Pulmonary oedema [Unknown]
  - Swelling [Unknown]
  - Syncope [Unknown]
  - Memory impairment [Unknown]

NARRATIVE: CASE EVENT DATE: 201701
